FAERS Safety Report 20887990 (Version 2)
Quarter: 2022Q2

REPORT INFORMATION
  Report Type: Spontaneous
  Country: US (occurrence: US)
  Receive Date: 20220529
  Receipt Date: 20220627
  Transmission Date: 20220720
  Serious: No
  Sender: FDA-Public Use
  Company Number: US-CELGENE-USA-2016061600

PATIENT
  Age: 87 Year
  Sex: Male

DRUGS (7)
  1. REVLIMID [Suspect]
     Active Substance: LENALIDOMIDE
     Indication: Plasma cell myeloma
     Route: 048
     Dates: start: 201407
  2. REVLIMID [Suspect]
     Active Substance: LENALIDOMIDE
     Route: 048
     Dates: start: 201408
  3. REVLIMID [Suspect]
     Active Substance: LENALIDOMIDE
     Route: 048
     Dates: start: 201412
  4. REVLIMID [Suspect]
     Active Substance: LENALIDOMIDE
     Dosage: 15-10-15
     Route: 048
     Dates: start: 201503, end: 201506
  5. REVLIMID [Suspect]
     Active Substance: LENALIDOMIDE
     Route: 048
     Dates: start: 201506
  6. REVLIMID [Suspect]
     Active Substance: LENALIDOMIDE
     Dosage: 5 MG DAILY
     Route: 048
     Dates: start: 20220211, end: 20220320
  7. REVLIMID [Suspect]
     Active Substance: LENALIDOMIDE
     Dosage: FREQUENCY: OTHER
     Route: 048
     Dates: start: 202204

REACTIONS (5)
  - Memory impairment [Unknown]
  - Diarrhoea [Unknown]
  - Gastric disorder [Unknown]
  - Renal cyst [Unknown]
  - Product dose omission issue [Unknown]

NARRATIVE: CASE EVENT DATE: 20220220
